FAERS Safety Report 16438887 (Version 1)
Quarter: 2019Q2

REPORT INFORMATION
  Report Type: Spontaneous
  Country: US (occurrence: US)
  Receive Date: 20190617
  Receipt Date: 20190617
  Transmission Date: 20190711
  Serious: No
  Sender: FDA-Public Use
  Company Number: PHEH2019US024432

PATIENT
  Sex: Female

DRUGS (2)
  1. ESTRADIOL. [Suspect]
     Active Substance: ESTRADIOL
     Dosage: 0.05 MG, UNK (TWICE WEEKLY)
     Route: 065
  2. ESTRADIOL. [Suspect]
     Active Substance: ESTRADIOL
     Indication: PRODUCT USED FOR UNKNOWN INDICATION
     Dosage: 0.05 MG, UNK (TWICE WEEKLY)
     Route: 065

REACTIONS (6)
  - Product formulation issue [Unknown]
  - Influenza [Unknown]
  - Fatigue [Unknown]
  - Drug ineffective [Unknown]
  - Metrorrhagia [Unknown]
  - Muscle spasms [Unknown]
